FAERS Safety Report 9883645 (Version 1)
Quarter: 2014Q1

REPORT INFORMATION
  Report Type: Spontaneous
  Country: SE (occurrence: SE)
  Receive Date: 20140210
  Receipt Date: 20140210
  Transmission Date: 20141002
  Serious: Yes (Other)
  Sender: FDA-Public Use
  Company Number: SE-ROCHE-1344989

PATIENT
  Sex: Male

DRUGS (4)
  1. ROACTEMRA [Suspect]
     Indication: PRODUCT USED FOR UNKNOWN INDICATION
     Route: 065
     Dates: start: 2012, end: 201311
  2. ELIQUIS [Concomitant]
     Dosage: 1 TABLET
     Route: 065
  3. LOSARTAN [Concomitant]
     Dosage: 1 TABLET
     Route: 065
  4. HYDROKLORTIAZID [Concomitant]
     Dosage: 1 TABLET
     Route: 065

REACTIONS (4)
  - Cardiac fibrillation [Recovering/Resolving]
  - Hypertension [Not Recovered/Not Resolved]
  - Pruritus [Recovered/Resolved]
  - Local swelling [Recovered/Resolved]
